FAERS Safety Report 10653151 (Version 2)
Quarter: 2014Q4

REPORT INFORMATION
  Report Type: Spontaneous
  Country: JP (occurrence: JP)
  Receive Date: 20141215
  Receipt Date: 20141215
  Transmission Date: 20150529
  Serious: Yes (Hospitalization, Other)
  Sender: FDA-Public Use
  Company Number: JP-GLAXOSMITHKLINE-B0982577A

PATIENT

DRUGS (6)
  1. ARIPIPRAZOLE. [Concomitant]
     Active Substance: ARIPIPRAZOLE
     Indication: ANGER
     Route: 048
  2. LEVETIRACETAM. [Suspect]
     Active Substance: LEVETIRACETAM
     Indication: EPILEPSY
     Route: 048
     Dates: start: 201312, end: 20140318
  3. LAMOTRIGINE. [Suspect]
     Active Substance: LAMOTRIGINE
     Indication: EPILEPSY
     Route: 048
     Dates: start: 201401, end: 20140306
  4. SODIUM VALPROATE [Concomitant]
     Active Substance: VALPROATE SODIUM
     Indication: EPILEPSY
     Route: 048
     Dates: start: 1998, end: 20140326
  5. BROMAZEPAM [Concomitant]
     Active Substance: BROMAZEPAM
     Indication: INSOMNIA
     Route: 048
     Dates: start: 1997
  6. FLUNITRAZEPAM [Concomitant]
     Active Substance: FLUNITRAZEPAM
     Indication: INSOMNIA
     Route: 048
     Dates: start: 1998

REACTIONS (19)
  - Stevens-Johnson syndrome [Recovering/Resolving]
  - Toxic epidermal necrolysis [Recovering/Resolving]
  - Erythema multiforme [Unknown]
  - Scab [Unknown]
  - Oral mucosa erosion [Unknown]
  - Skin erosion [Unknown]
  - Eye discharge [Unknown]
  - Vulval disorder [Unknown]
  - Nikolsky^s sign [Unknown]
  - Conjunctivitis [Unknown]
  - Rash pustular [Unknown]
  - Lip erosion [Unknown]
  - Rash maculo-papular [Unknown]
  - Erythema of eyelid [Unknown]
  - Palmar erythema [Unknown]
  - Pyrexia [Unknown]
  - Ocular hyperaemia [Unknown]
  - Drug eruption [Unknown]
  - Erythema [Unknown]

NARRATIVE: CASE EVENT DATE: 201403
